FAERS Safety Report 7201428-7 (Version None)
Quarter: 2010Q4

REPORT INFORMATION
  Report Type: 
  Country: None (occurrence: None)
  Receive Date: 20101215
  Receipt Date: 20101201
  Transmission Date: 20110411
  Serious: Yes (Other)
  Sender: FDA-Public Use
  Company Number: 2010004840

PATIENT
  Age: 89 Year
  Weight: 16 kg

DRUGS (9)
  1. ERLOTINIB HYDROCHLORIDE [Suspect]
     Indication: LUNG SQUAMOUS CELL CARCINOMA STAGE UNSPECIFIED
     Dosage: (100 MG,QD),ORAL
     Route: 048
     Dates: start: 20090806, end: 20090904
  2. ALLEGRA [Concomitant]
  3. RIZABEN (TRANILAST) [Concomitant]
  4. FORSENID (SENNOSIDE A+B) [Concomitant]
  5. RIKAVARIN [Concomitant]
  6. SELBEX (TEPRENONE) [Concomitant]
  7. DIAZEPAM [Concomitant]
  8. NITRAZEPAM [Concomitant]
  9. MAGLAX [Concomitant]

REACTIONS (2)
  - ANAEMIA [None]
  - DECREASED APPETITE [None]
